FAERS Safety Report 25143243 (Version 2)
Quarter: 2025Q2

REPORT INFORMATION
  Report Type: Spontaneous
  Country: US (occurrence: US)
  Receive Date: 20250401
  Receipt Date: 20250402
  Transmission Date: 20250717
  Serious: Yes (Other)
  Sender: APOTEX
  Company Number: US-APOTEX-2025AP003633

PATIENT
  Age: 25 Year
  Sex: Male

DRUGS (1)
  1. DABIGATRAN [Suspect]
     Active Substance: DABIGATRAN
     Indication: Cardiac ventricular thrombosis
     Route: 065

REACTIONS (1)
  - Haemoptysis [Unknown]
